FAERS Safety Report 11794229 (Version 1)
Quarter: 2015Q4

REPORT INFORMATION
  Report Type: Spontaneous
  Country: ES (occurrence: ES)
  Receive Date: 20151202
  Receipt Date: 20151202
  Transmission Date: 20160305
  Serious: Yes (Other)
  Sender: FDA-Public Use
  Company Number: PHHY2015ES156369

PATIENT
  Age: 55 Year
  Sex: Male

DRUGS (1)
  1. BISOPROLOL [Suspect]
     Active Substance: BISOPROLOL
     Indication: MITRAL VALVE PROLAPSE
     Dosage: 5 MG, QD
     Route: 065

REACTIONS (1)
  - Atrial fibrillation [Recovered/Resolved]
